FAERS Safety Report 22086297 (Version 3)
Quarter: 2023Q1

REPORT INFORMATION
  Report Type: Report from Study
  Country: CZ (occurrence: CZ)
  Receive Date: 20230310
  Receipt Date: 20230324
  Transmission Date: 20230417
  Serious: Yes (Life-Threatening, Hospitalization, Disabling, Other)
  Sender: FDA-Public Use
  Company Number: CZ-ABBVIE-4319377

PATIENT
  Age: 85 Year
  Sex: Female
  Weight: 60 kg

DRUGS (14)
  1. IBRUTINIB [Suspect]
     Active Substance: IBRUTINIB
     Indication: Chronic lymphocytic leukaemia
     Route: 048
     Dates: start: 20131106, end: 20230206
  2. IBRUTINIB [Suspect]
     Active Substance: IBRUTINIB
     Indication: Chronic lymphocytic leukaemia
     Route: 048
     Dates: start: 20230214, end: 20230301
  3. Rilmenidini Phosphas [Concomitant]
     Indication: Hypertension
     Route: 048
     Dates: start: 2011
  4. PROMETHAZINI HYDROCHLORIDUM [Concomitant]
     Indication: Insomnia
     Route: 048
     Dates: start: 20150513
  5. BROMAZEPAM [Concomitant]
     Active Substance: BROMAZEPAM
     Indication: Insomnia
     Route: 048
     Dates: start: 20130513
  6. FEBUXOSTAT [Concomitant]
     Active Substance: FEBUXOSTAT
     Indication: Hyperuricaemia
     Route: 048
     Dates: start: 20181101
  7. CALCII CARBONAS [Concomitant]
     Indication: Osteoporosis
     Route: 048
     Dates: start: 2011
  8. PERINDOPRILUM [Concomitant]
     Indication: Hypertension
     Route: 048
     Dates: start: 20170731
  9. Bisoprololi Fumaras [Concomitant]
     Indication: Hypertension
     Route: 048
     Dates: start: 20150513
  10. CHOLECALCIFEROL [Concomitant]
     Active Substance: CHOLECALCIFEROL
     Indication: Osteoporosis
     Route: 048
     Dates: start: 2011
  11. MAGNESII OXIDUM [Concomitant]
     Indication: Osteoporosis
     Route: 048
     Dates: start: 2011
  12. Zinci oxidum [Concomitant]
     Indication: Osteoporosis
     Route: 048
     Dates: start: 2011
  13. Cupri oxium [Concomitant]
     Indication: Osteoporosis
     Route: 048
     Dates: start: 2011
  14. Lercanidipini hydrochloridum [Concomitant]
     Indication: Hypertension
     Route: 048
     Dates: start: 20170113

REACTIONS (3)
  - Klebsiella infection [Recovered/Resolved]
  - Urosepsis [Recovered/Resolved]
  - General physical health deterioration [Recovered/Resolved]

NARRATIVE: CASE EVENT DATE: 20230130
